FAERS Safety Report 8448067-8 (Version None)
Quarter: 2012Q2

REPORT INFORMATION
  Report Type: 
  Country: None (occurrence: None)
  Receive Date: 20120612
  Receipt Date: 20120605
  Transmission Date: 20120825
  Serious: Yes (Death, Hospitalization)
  Sender: FDA-Public Use
  Company Number: 2012SP020931

PATIENT
  Age: 70 Year
  Sex: Female

DRUGS (4)
  1. VICTRELIS [Suspect]
     Indication: HEPATITIS C
     Dosage: 800 MG;TID;PO
     Route: 048
     Dates: start: 20111103
  2. VICTRELIS [Suspect]
     Indication: HEPATIC CIRRHOSIS
     Dosage: 800 MG;TID;PO
     Route: 048
     Dates: start: 20111103
  3. RIBAVIRIN [Suspect]
     Indication: HEPATITIS C
     Dosage: 600 MG;BID;PO
     Route: 048
  4. PEG-INTRON [Suspect]
     Indication: HEPATITIS C
     Dosage: 150 MCG;QW;PO
     Route: 048

REACTIONS (6)
  - SEPTIC SHOCK [None]
  - RESPIRATORY FAILURE [None]
  - RENAL FAILURE [None]
  - ANAEMIA [None]
  - BACTERIAL INFECTION [None]
  - PNEUMONIA [None]
